FAERS Safety Report 8079210-0 (Version None)
Quarter: 2012Q1

REPORT INFORMATION
  Report Type: 
  Country: None (occurrence: None)
  Receive Date: 20120128
  Receipt Date: 20110817
  Transmission Date: 20120608
  Serious: No
  Sender: FDA-Public Use
  Company Number: US-ABBOTT-11P-163-0847299-00

PATIENT
  Age: 64 Year
  Sex: Male

DRUGS (9)
  1. FIBER [Concomitant]
     Indication: SUPPLEMENTATION THERAPY
  2. METHOTREXATE [Concomitant]
     Indication: RHEUMATOID ARTHRITIS
  3. SIMVASTATIN [Concomitant]
     Indication: BLOOD CHOLESTEROL INCREASED
  4. HUMIRA [Suspect]
     Indication: RHEUMATOID ARTHRITIS
     Dates: start: 20090101
  5. KRILL OIL [Concomitant]
     Indication: SUPPLEMENTATION THERAPY
  6. ANTACID [Concomitant]
     Indication: ABDOMINAL DISCOMFORT
     Dosage: OTC
  7. ASPIRIN [Concomitant]
     Indication: UNEVALUABLE EVENT
  8. PIROXICAM [Concomitant]
     Indication: PAIN
  9. FOLIC ACID [Concomitant]
     Indication: VITAMIN SUPPLEMENTATION

REACTIONS (1)
  - PAIN [None]
